FAERS Safety Report 9321004 (Version 2)
Quarter: 2013Q3

REPORT INFORMATION
  Report Type: Spontaneous
  Country: US (occurrence: US)
  Receive Date: 20130531
  Receipt Date: 20130813
  Transmission Date: 20140515
  Serious: No
  Sender: FDA-Public Use
  Company Number: US-PFIZER INC-2013163854

PATIENT
  Age: 68 Year
  Sex: Male
  Weight: 70.3 kg

DRUGS (1)
  1. EFFEXOR XR [Suspect]
     Dosage: 150 MG, 2X/DAY
     Route: 048

REACTIONS (1)
  - Drug ineffective [Unknown]
